FAERS Safety Report 7219155-9 (Version None)
Quarter: 2011Q1

REPORT INFORMATION
  Report Type: 
  Country: None (occurrence: None)
  Receive Date: 20110111
  Receipt Date: 20110105
  Transmission Date: 20110831
  Serious: Yes (Other)
  Sender: FDA-Public Use
  Company Number: US-AMGEN-USASP2011000712

PATIENT

DRUGS (1)
  1. ENBREL [Suspect]
     Indication: RHEUMATOID ARTHRITIS
     Dates: start: 20101216

REACTIONS (9)
  - ERYTHEMA [None]
  - CHEST DISCOMFORT [None]
  - CONTUSION [None]
  - BURNING SENSATION [None]
  - SINUS CONGESTION [None]
  - PRODUCTIVE COUGH [None]
  - URTICARIA [None]
  - PRURITUS [None]
  - HEART RATE INCREASED [None]
